FAERS Safety Report 10608355 (Version 1)
Quarter: 2014Q4

REPORT INFORMATION
  Report Type: Spontaneous
  Country: IT (occurrence: IT)
  Receive Date: 20141125
  Receipt Date: 20141125
  Transmission Date: 20150529
  Serious: Yes (Death, Life-Threatening)
  Sender: FDA-Public Use
  Company Number: IT-BAUSCH-BL-2014-009099

PATIENT
  Age: 69 Year
  Sex: Male
  Weight: 70 kg

DRUGS (2)
  1. INCIVO [Suspect]
     Active Substance: TELAPREVIR
     Indication: ANTIVIRAL TREATMENT
     Route: 048
     Dates: start: 20140325, end: 20140503
  2. RIBAVIRIN. [Suspect]
     Active Substance: RIBAVIRIN
     Indication: PRODUCT USED FOR UNKNOWN INDICATION
     Route: 048
     Dates: start: 20140325, end: 20140503

REACTIONS (6)
  - Ascites [Fatal]
  - Cholestasis [Fatal]
  - Rash [Fatal]
  - Hepatic failure [Fatal]
  - Encephalopathy [Fatal]
  - Pyrexia [Fatal]

NARRATIVE: CASE EVENT DATE: 20140407
